FAERS Safety Report 16767627 (Version 1)
Quarter: 2019Q4

REPORT INFORMATION
  Report Type: Spontaneous
  Country: US (occurrence: US)
  Receive Date: 20190903
  Receipt Date: 20190903
  Transmission Date: 20200122
  Serious: Yes (Other)
  Sender: FDA-Public Use
  Company Number: None

PATIENT
  Age: 52 Year
  Sex: Male
  Weight: 96 kg

DRUGS (4)
  1. LISINOPRIL 5 MG PO DAILY [Concomitant]
     Dates: start: 20180521
  2. TASIGNA [Suspect]
     Active Substance: NILOTINIB
     Indication: CHRONIC MYELOID LEUKAEMIA
     Route: 048
     Dates: start: 20171222
  3. AMLODIPINE 10 MG PO DAILY [Concomitant]
     Dates: start: 20190726
  4. MAGNESIUM OXIDE 400 MG PO TWICE DAILY [Concomitant]
     Dates: start: 20190321

REACTIONS (2)
  - Thrombotic microangiopathy [None]
  - Renal impairment [None]

NARRATIVE: CASE EVENT DATE: 20181206
